FAERS Safety Report 5528665-1 (Version None)
Quarter: 2007Q4

REPORT INFORMATION
  Report Type: 
  Country: None (occurrence: None)
  Receive Date: 20071129
  Receipt Date: 20071122
  Transmission Date: 20080405
  Serious: Yes (Hospitalization)
  Sender: FDA-Public Use
  Company Number: PHBS2007JP19125

PATIENT
  Age: 6 Year
  Sex: Female

DRUGS (3)
  1. CYCLOSPORINE [Suspect]
     Indication: INTERSTITIAL LUNG DISEASE
     Route: 048
  2. PREDNISOLONE [Suspect]
     Indication: DERMATOMYOSITIS
     Dosage: 1 MG/KG/DAY
     Route: 048
  3. METHOTREXATE [Suspect]
     Indication: DERMATOMYOSITIS
     Route: 065

REACTIONS (1)
  - OSTEOPOROTIC FRACTURE [None]
